FAERS Safety Report 14600791 (Version 1)
Quarter: 2018Q1

REPORT INFORMATION
  Report Type: Spontaneous
  Country: FR (occurrence: FR)
  Receive Date: 20180305
  Receipt Date: 20180305
  Transmission Date: 20180509
  Serious: Yes (Other)
  Sender: FDA-Public Use
  Company Number: FR-009507513-1802FRA013727

PATIENT
  Age: 24 Year
  Sex: Male
  Weight: 80 kg

DRUGS (8)
  1. FRAGMINE [Concomitant]
     Active Substance: DALTEPARIN SODIUM
     Dosage: 5000 IU, QD
     Route: 058
  2. OROZAMUDOL [Concomitant]
     Active Substance: TRAMADOL
     Dosage: 50 MG, UNK
     Route: 048
  3. CUBICIN [Suspect]
     Active Substance: DAPTOMYCIN
     Indication: OSTEITIS
     Dosage: 850 MG, QD
     Route: 042
     Dates: start: 20171025, end: 20180122
  4. ACETAMINOPHEN. [Concomitant]
     Active Substance: ACETAMINOPHEN
     Dosage: 1 G, Q6H
  5. CEFOTAXIME SODIUM [Suspect]
     Active Substance: CEFOTAXIME SODIUM
     Indication: KLEBSIELLA BACTERAEMIA
     Dosage: 2 G, QD
     Route: 042
     Dates: start: 20180120, end: 20180122
  6. RIFAMPIN. [Suspect]
     Active Substance: RIFAMPIN
     Indication: OSTEITIS
     Dosage: 1200 MG, QD
     Route: 048
     Dates: start: 20171212, end: 20180122
  7. IMIPENEM AND CILASTATIN [Suspect]
     Active Substance: CILASTATIN SODIUM\IMIPENEM
     Indication: INFUSION SITE INFECTION
     Dosage: 4 G, QD
     Route: 042
     Dates: start: 20180119, end: 20180120
  8. AMIKACIN [Suspect]
     Active Substance: AMIKACIN
     Indication: INFUSION SITE INFECTION
     Dosage: 2 G, ONCE
     Route: 042
     Dates: start: 20180119

REACTIONS (1)
  - Neutropenia [Recovered/Resolved]

NARRATIVE: CASE EVENT DATE: 20180122
